FAERS Safety Report 8287317-8 (Version None)
Quarter: 2012Q2

REPORT INFORMATION
  Report Type: 
  Country: None (occurrence: None)
  Receive Date: 20120416
  Receipt Date: 20120416
  Transmission Date: 20120825
  Serious: No
  Sender: FDA-Public Use
  Company Number: None

PATIENT
  Age: 47 Year
  Sex: Female
  Weight: 8640.9 kg

DRUGS (1)
  1. ASACOL HD [Suspect]
     Indication: COLITIS
     Dosage: 800 MG
     Route: 048
     Dates: start: 20111229, end: 20120401

REACTIONS (2)
  - COLITIS ULCERATIVE [None]
  - CONDITION AGGRAVATED [None]
